FAERS Safety Report 4439501-9 (Version None)
Quarter: 2004Q3

REPORT INFORMATION
  Report Type: 
  Country: None (occurrence: None)
  Receive Date: 20040830
  Receipt Date: 20040817
  Transmission Date: 20050211
  Serious: Yes (Hospitalization)
  Sender: FDA-Public Use
  Company Number: 2004045172

PATIENT
  Age: 19 Year
  Sex: Female

DRUGS (3)
  1. RELPAX [Suspect]
     Indication: HEADACHE
     Dosage: 40 MG (40 MG, 1 IN 1 D), ORAL
     Route: 048
     Dates: start: 20040612, end: 20040612
  2. IBUPROFEN [Concomitant]
  3. PROPOFAN (PARACETAMOL) [Concomitant]

REACTIONS (8)
  - CONDITION AGGRAVATED [None]
  - FATIGUE [None]
  - HYPOTENSION [None]
  - MALAISE [None]
  - ORTHOSTATIC HYPOTENSION [None]
  - PALLOR [None]
  - SYNCOPE VASOVAGAL [None]
  - VERTIGO [None]
